FAERS Safety Report 8956865 (Version 1)
Quarter: 2012Q4

REPORT INFORMATION
  Report Type: Spontaneous
  Country: BE (occurrence: None)
  Receive Date: 20121128
  Receipt Date: 20121128
  Transmission Date: 20130627
  Serious: Yes (Life-Threatening)
  Sender: FDA-Public Use
  Company Number: BE-010182

PATIENT
  Age: 51 Year
  Sex: Male
  Weight: 79 kg

DRUGS (1)
  1. VASOPRESSIN AND ANALOGUES [Suspect]
     Route: 041
     Dates: start: 20121120, end: 20121122

REACTIONS (4)
  - Respiratory failure [None]
  - Septic shock [None]
  - Blood bilirubin increased [None]
  - Blood pressure diastolic decreased [None]
